FAERS Safety Report 11860902 (Version 9)
Quarter: 2016Q1

REPORT INFORMATION
  Report Type: Spontaneous
  Country: JP (occurrence: JP)
  Receive Date: 20151222
  Receipt Date: 20160330
  Transmission Date: 20160526
  Serious: Yes (Hospitalization, Other)
  Sender: FDA-Public Use
  Company Number: JP-PFIZER INC-2015430805

PATIENT
  Age: 36 Year
  Sex: Male

DRUGS (2)
  1. TORISEL [Suspect]
     Active Substance: TEMSIROLIMUS
     Indication: METASTATIC RENAL CELL CARCINOMA
     Dosage: 25 MG, UNK
     Route: 041
     Dates: start: 20151112
  2. TORISEL [Suspect]
     Active Substance: TEMSIROLIMUS
     Dosage: 20 MG, UNK
     Route: 041
     Dates: start: 20160107

REACTIONS (10)
  - Hyperglycaemia [Recovering/Resolving]
  - Hypothyroidism [Unknown]
  - Pigmentation disorder [Recovered/Resolved]
  - Rash [Unknown]
  - Haemoglobin decreased [Recovered/Resolved]
  - Condition aggravated [Recovering/Resolving]
  - Malaise [Recovered/Resolved]
  - Pruritus [Unknown]
  - Condition aggravated [Recovered/Resolved]
  - Condition aggravated [Unknown]

NARRATIVE: CASE EVENT DATE: 2015
